FAERS Safety Report 8153696-5 (Version None)
Quarter: 2012Q1

REPORT INFORMATION
  Report Type: 
  Country: None (occurrence: None)
  Receive Date: 20120221
  Receipt Date: 20120213
  Transmission Date: 20120608
  Serious: Yes (Other)
  Sender: FDA-Public Use
  Company Number: CA-B.I. PHARMACEUTICALS,INC./RIDGEFIELD-2012-CN-00265CN

PATIENT
  Age: 67 Year
  Sex: Male

DRUGS (5)
  1. GLYBURIDE [Concomitant]
     Route: 048
  2. METFORMIN HCL [Concomitant]
     Route: 048
  3. MIRAPEX [Suspect]
     Dosage: 0.75 MG
     Route: 048
  4. MIRAPEX [Suspect]
     Dosage: 1.5 MG
     Route: 048
  5. MIRAPEX [Suspect]
     Dosage: 0.75 MG
     Route: 048

REACTIONS (2)
  - BALANCE DISORDER [None]
  - WALKING DISABILITY [None]
